FAERS Safety Report 5647268-1 (Version None)
Quarter: 2008Q1

REPORT INFORMATION
  Report Type: 
  Country: None (occurrence: None)
  Receive Date: 20080228
  Receipt Date: 20080215
  Transmission Date: 20080703
  Serious: Yes (Hospitalization)
  Sender: FDA-Public Use
  Company Number: 100#08#2008-00960

PATIENT
  Age: 42 Year
  Sex: Female

DRUGS (1)
  1. CARBAMAZEPINE [Suspect]
     Indication: SOMATOFORM DISORDER
     Dosage: 600 MG

REACTIONS (1)
  - HEARING IMPAIRED [None]
